FAERS Safety Report 11776562 (Version 7)
Quarter: 2017Q2

REPORT INFORMATION
  Report Type: Report from Study
  Country: DE (occurrence: DE)
  Receive Date: 20151125
  Receipt Date: 20170407
  Transmission Date: 20170829
  Serious: Yes (Hospitalization)
  Sender: FDA-Public Use
  Company Number: PHHO2015DE019576

PATIENT
  Age: 58 Year
  Sex: Male
  Weight: 85.5 kg

DRUGS (3)
  1. CERTICAN [Suspect]
     Active Substance: EVEROLIMUS
     Indication: RENAL TRANSPLANT
     Dosage: 3.5 MG, BID (3.5-0-3.5)
     Route: 048
     Dates: start: 20150813, end: 20160422
  2. PROGRAF [Suspect]
     Active Substance: TACROLIMUS\TACROLIMUS ANHYDROUS
     Indication: RENAL TRANSPLANT
     Dosage: 5 MG, BID (5-0-5)
     Route: 065
     Dates: start: 20150812, end: 20160422
  3. PREDNISON [Suspect]
     Active Substance: PREDNISONE
     Indication: RENAL TRANSPLANT
     Dosage: 7.5 MG, QD
     Route: 065
     Dates: start: 20150812, end: 20160422

REACTIONS (6)
  - Kidney transplant rejection [Recovered/Resolved]
  - Renal impairment [Recovered/Resolved]
  - Shunt aneurysm [Recovered/Resolved]
  - Shunt stenosis [Recovered/Resolved]
  - Enteritis [Recovered/Resolved]
  - Kidney transplant rejection [Recovered/Resolved]

NARRATIVE: CASE EVENT DATE: 20151102
